FAERS Safety Report 6607426-6 (Version None)
Quarter: 2010Q1

REPORT INFORMATION
  Report Type: 
  Country: None (occurrence: None)
  Receive Date: 20100203
  Receipt Date: 20100120
  Transmission Date: 20100710
  Serious: Yes (Other)
  Sender: FDA-Public Use
  Company Number: GAM-083-09-PT

PATIENT
  Age: 62 Year
  Sex: Male

DRUGS (6)
  1. OCTAGAM [Suspect]
     Indication: IDIOPATHIC THROMBOCYTOPENIC PURPURA
     Dosage: 50 G I.V.
     Route: 042
     Dates: start: 20090516, end: 20090519
  2. OMEPRAZOLE [Concomitant]
  3. PREDNISOLONE [Concomitant]
  4. METFORMIN [Concomitant]
  5. BROMAZEPAM [Concomitant]
  6. SODIUM CHLORIDE [Concomitant]

REACTIONS (1)
  - HEPATIC FAILURE [None]
